FAERS Safety Report 12899688 (Version 2)
Quarter: 2016Q4

REPORT INFORMATION
  Report Type: Spontaneous
  Country: US (occurrence: US)
  Receive Date: 20161101
  Receipt Date: 20161216
  Transmission Date: 20170207
  Serious: Yes (Hospitalization, Other)
  Sender: FDA-Public Use
  Company Number: US-GLAXOSMITHKLINE-US2016159837

PATIENT
  Age: 65 Year
  Sex: Male

DRUGS (1)
  1. LAMICTAL [Suspect]
     Active Substance: LAMOTRIGINE
     Dosage: 200 MG, U
     Route: 048
     Dates: start: 201404, end: 201404

REACTIONS (13)
  - Rash [Unknown]
  - Adverse drug reaction [Unknown]
  - Blood pressure increased [Unknown]
  - Wrong drug administered [Recovered/Resolved with Sequelae]
  - Vomiting [Unknown]
  - Malaise [Not Recovered/Not Resolved]
  - Drug dispensing error [Recovered/Resolved with Sequelae]
  - Wrong patient received medication [Recovered/Resolved with Sequelae]
  - Accidental exposure to product [Recovered/Resolved with Sequelae]
  - Toxicity to various agents [Unknown]
  - Arthralgia [Unknown]
  - Overdose [Unknown]
  - Renal failure [Not Recovered/Not Resolved]

NARRATIVE: CASE EVENT DATE: 201404
